FAERS Safety Report 9203318 (Version 2)
Quarter: 2013Q3

REPORT INFORMATION
  Report Type: Spontaneous
  Country: US (occurrence: None)
  Receive Date: 20120709
  Receipt Date: 20130724
  Transmission Date: 20140515
  Serious: Yes (Other)
  Sender: FDA-Public Use
  Company Number: PHEH2012US005718

PATIENT
  Age: 75 Year
  Sex: Female
  Weight: 134.4 kg

DRUGS (13)
  1. GLEEVEC (IMATINIB) [Suspect]
     Indication: CHRONIC MYELOID LEUKAEMIA
     Route: 048
     Dates: start: 20090812
  2. FUROSEMIDE (FUROSEMIDE) TABLET [Concomitant]
  3. LEVOTHYROXNE (LEVOTHYROXNE) [Concomitant]
  4. OMEPRAZOL (OMEPRAZOLE) CAPSULE [Concomitant]
  5. METOPROLOL (METOPROLOL) TABLET ONGOING [Concomitant]
  6. VESICARE (SOLIFENACIN) TABLET ONGOING [Concomitant]
  7. ENALAPRIL (ENALAPRIL) ONGOING [Concomitant]
  8. ZOLPIDEM (ZOLPIDEM) TABLET [Concomitant]
  9. AMBIEN (ZOLPIDEM TARTRATE) ONGOING [Concomitant]
  10. NOVLOG (INSULIN ASPART) ONGOING [Concomitant]
  11. LOPRESSOR (METOPROLOL TARTRATE) [Concomitant]
  12. TRAMADOL HYDROCHLORIDE [Concomitant]
  13. ASPIRIN (ACETYLSALICYLIC ACID) [Concomitant]

REACTIONS (3)
  - Diarrhoea [None]
  - Dizziness [None]
  - Asthenia [None]
